FAERS Safety Report 8450005-9 (Version None)
Quarter: 2012Q2

REPORT INFORMATION
  Report Type: 
  Country: None (occurrence: None)
  Receive Date: 20120620
  Receipt Date: 20120619
  Transmission Date: 20120825
  Serious: Yes (Death, Hospitalization)
  Sender: FDA-Public Use
  Company Number: PHHY2012NL050992

PATIENT
  Sex: Male

DRUGS (3)
  1. ZOMETA [Suspect]
     Indication: PROSTATE CANCER METASTATIC
     Dosage: 4 MG / 100 ML (IN 20 MIN) ONE IN 28 DAYS
     Dates: start: 20120227
  2. ZOMETA [Suspect]
     Dosage: 4 MG / 100 ML (IN 20 MIN) ONE IN 28 DAYS
     Dates: start: 20120613
  3. ZOMETA [Suspect]
     Dosage: 4 MG / 100 ML (IN 20 MIN) ONE IN 28 DAYSUNK
     Dates: start: 20120514

REACTIONS (5)
  - NAUSEA [None]
  - TENSION [None]
  - BRAIN OEDEMA [None]
  - DEATH [None]
  - HEADACHE [None]
